FAERS Safety Report 19192169 (Version 2)
Quarter: 2023Q4

REPORT INFORMATION
  Report Type: Other
  Country: IR (occurrence: None)
  Receive Date: 20210429
  Receipt Date: 20231127
  Transmission Date: 20240110
  Serious: Yes (Other)
  Sender: FDA-Public Use
  Company Number: IR-SAPTALIS PHARMACEUTICALS,LLC-000061

PATIENT
  Age: 37 Year
  Sex: Female

DRUGS (2)
  1. CLOBETASOL [Suspect]
     Active Substance: CLOBETASOL
     Indication: Chronic cutaneous lupus erythematosus
     Route: 061
  2. PIMECROLIMUS [Suspect]
     Active Substance: PIMECROLIMUS
     Indication: Chronic cutaneous lupus erythematosus
     Route: 061

REACTIONS (2)
  - Chronic cutaneous lupus erythematosus [Recovered/Resolved]
  - Treatment failure [Unknown]
